FAERS Safety Report 5605304-2 (Version None)
Quarter: 2008Q1

REPORT INFORMATION
  Report Type: 
  Country: None (occurrence: None)
  Receive Date: 20080129
  Receipt Date: 20080116
  Transmission Date: 20080703
  Serious: Yes (Life-Threatening, Other)
  Sender: FDA-Public Use
  Company Number: US-PFIZER INC-2007105533

PATIENT
  Sex: Female

DRUGS (12)
  1. CHANTIX [Suspect]
     Indication: SMOKING CESSATION THERAPY
     Dates: start: 20070101, end: 20070101
  2. CELEXA [Concomitant]
  3. TEGRETOL [Concomitant]
  4. LAMICTAL [Concomitant]
  5. GLUCOPHAGE [Concomitant]
  6. NEXIUM [Concomitant]
  7. ZOCOR [Concomitant]
  8. ALDACTONE [Concomitant]
  9. ALBUTEROL [Concomitant]
  10. AZMACORT [Concomitant]
  11. FLONASE [Concomitant]
  12. ALL OTHER THERAPEUTIC PRODUCTS [Concomitant]
     Indication: BIPOLAR DISORDER

REACTIONS (2)
  - BIPOLAR DISORDER [None]
  - SUICIDAL BEHAVIOUR [None]
